FAERS Safety Report 8062979-9 (Version None)
Quarter: 2012Q1

REPORT INFORMATION
  Report Type: 
  Country: None (occurrence: None)
  Receive Date: 20120123
  Receipt Date: 20120116
  Transmission Date: 20120608
  Serious: Yes (Other)
  Sender: FDA-Public Use
  Company Number: US-BAYER-2012-006036

PATIENT

DRUGS (1)
  1. ALEVE (CAPLET) [Suspect]
     Route: 048

REACTIONS (3)
  - COLON CANCER METASTATIC [None]
  - BONE CANCER METASTATIC [None]
  - HEPATIC NEOPLASM MALIGNANT [None]
